FAERS Safety Report 5389314-9 (Version None)
Quarter: 2007Q3

REPORT INFORMATION
  Report Type: 
  Country: None (occurrence: None)
  Receive Date: 20070713
  Receipt Date: 20070709
  Transmission Date: 20080115
  Serious: Yes (Death)
  Sender: FDA-Public Use
  Company Number: 20073866

PATIENT
  Sex: Female

DRUGS (1)
  1. LIORESAL [Suspect]
     Indication: MUSCLE SPASTICITY
     Dosage: 1600 MCG, DAILY, INTRATHECAL
     Route: 037

REACTIONS (5)
  - ANURIA [None]
  - MUSCLE SPASMS [None]
  - PAIN [None]
  - SOMNOLENCE [None]
  - UNRESPONSIVE TO STIMULI [None]
